FAERS Safety Report 22651559 (Version 5)
Quarter: 2025Q1

REPORT INFORMATION
  Report Type: Spontaneous
  Country: US (occurrence: US)
  Receive Date: 20230628
  Receipt Date: 20250128
  Transmission Date: 20250409
  Serious: No
  Sender: PFIZER
  Company Number: US-PFIZER INC-PV202300110451

PATIENT
  Age: 69 Year
  Sex: Female

DRUGS (2)
  1. IBRANCE [Suspect]
     Active Substance: PALBOCICLIB
  2. IBRANCE [Suspect]
     Active Substance: PALBOCICLIB

REACTIONS (3)
  - Malaise [Unknown]
  - Illness [Unknown]
  - Asthenia [Unknown]
